FAERS Safety Report 18795320 (Version 1)
Quarter: 2021Q1

REPORT INFORMATION
  Report Type: Report from Study
  Country: US (occurrence: US)
  Receive Date: 20210127
  Receipt Date: 20210127
  Transmission Date: 20210419
  Serious: Yes (Death)
  Sender: FDA-Public Use
  Company Number: US-TAIHO ONCOLOGY  INC-EU-2021-00094

PATIENT
  Age: 66 Year
  Sex: Male

DRUGS (8)
  1. PROCHLORPERAZINE. [Concomitant]
     Active Substance: PROCHLORPERAZINE
  2. SIMVASTATIN. [Concomitant]
     Active Substance: SIMVASTATIN
  3. ONDANSETRON [Concomitant]
     Active Substance: ONDANSETRON
  4. LONSURF [Suspect]
     Active Substance: TIPIRACIL HYDROCHLORIDE\TRIFLURIDINE
     Indication: GASTRIC CANCER
     Dosage: CYCLE UNKNOWN
     Route: 048
     Dates: start: 20201001, end: 202012
  5. LACTULOSE. [Concomitant]
     Active Substance: LACTULOSE
  6. LONSURF [Suspect]
     Active Substance: TIPIRACIL HYDROCHLORIDE\TRIFLURIDINE
     Indication: OESOPHAGEAL CARCINOMA
  7. FUROSEMIDE. [Concomitant]
     Active Substance: FUROSEMIDE
  8. LISINOPRIL. [Concomitant]
     Active Substance: LISINOPRIL

REACTIONS (4)
  - Pain [Unknown]
  - Death [Fatal]
  - Disease progression [Unknown]
  - Nausea [Unknown]
